FAERS Safety Report 9585782 (Version 1)
Quarter: 2013Q4

REPORT INFORMATION
  Report Type: Spontaneous
  Country: US (occurrence: None)
  Receive Date: 20131002
  Receipt Date: 20131002
  Transmission Date: 20140711
  Serious: Yes (Other)
  Sender: FDA-Public Use
  Company Number: None

PATIENT
  Age: 71 Year
  Sex: Female
  Weight: 47.63 kg

DRUGS (1)
  1. PROLIA [Suspect]
     Indication: OSTEOPOROSIS
     Dosage: 2 TIMES A YEAR/ ARM
     Dates: start: 201211, end: 201305

REACTIONS (8)
  - Chest pain [None]
  - Myocardial infarction [None]
  - Asthenia [None]
  - Dyspnoea [None]
  - Bacterial infection [None]
  - Cystitis [None]
  - Tremor [None]
  - Ear infection [None]
